FAERS Safety Report 5319997-0 (Version None)
Quarter: 2007Q1

REPORT INFORMATION
  Report Type: 
  Country: None (occurrence: None)
  Receive Date: 20070209
  Receipt Date: 20061113
  Transmission Date: 20070707
  Serious: Yes (Hospitalization)
  Sender: FDA-Public Use
  Company Number: 200619348US

PATIENT
  Age: 71 Year
  Sex: Male

DRUGS (1)
  1. INSULIN GLULISINE  (APIDRA) [Suspect]
     Indication: DIABETES MELLITUS NON-INSULIN-DEPENDENT
     Dosage: CONT
     Dates: start: 20061031

REACTIONS (1)
  - HYPOGLYCAEMIA [None]
